FAERS Safety Report 7642521-4 (Version None)
Quarter: 2011Q3

REPORT INFORMATION
  Report Type: 
  Country: None (occurrence: None)
  Receive Date: 20110728
  Receipt Date: 20110715
  Transmission Date: 20111222
  Serious: Yes (Other)
  Sender: FDA-Public Use
  Company Number: US-TYCO HEALTHCARE/MALLINCKRODT-T201101437

PATIENT
  Sex: Female

DRUGS (13)
  1. CALCIUM W/VITAMIN D NOS [Concomitant]
     Dosage: 1 TAB QD
     Route: 048
  2. PLAVIX [Concomitant]
     Dosage: 75 MG, QD
     Route: 048
  3. HYDROCHLOROTHIAZIDE [Concomitant]
     Dosage: 25 MG, QD
     Route: 048
  4. NOVALOG [Concomitant]
  5. ANAFRANIL CAP [Suspect]
     Indication: DEPRESSION
     Dosage: 25 MG, QD
     Route: 048
     Dates: start: 20110701
  6. LANTUS [Concomitant]
     Dosage: 26 UNITS QD
  7. SIMVASTATIN [Concomitant]
     Dosage: 40 MG, QD
     Route: 048
  8. FERROUS SULFATE TAB [Concomitant]
     Dosage: 325 MG, QD
     Route: 048
  9. DITROPAN [Concomitant]
     Dosage: 5 MG, BID
     Route: 048
  10. PROTONIX [Concomitant]
     Dosage: 40 MG, QD
     Route: 048
  11. MULTI-VITAMINS [Concomitant]
     Dosage: 1 TAB QD
     Route: 048
  12. SYNTHROID [Concomitant]
     Dosage: 100 UG/HR, UNK
     Route: 048
  13. METOPROLOL TARTRATE [Concomitant]

REACTIONS (2)
  - HYPOTENSION [None]
  - ORTHOSTATIC HYPOTENSION [None]
